FAERS Safety Report 4469763-3 (Version None)
Quarter: 2004Q3

REPORT INFORMATION
  Report Type: 
  Country: None (occurrence: None)
  Receive Date: 20040920
  Receipt Date: 20040712
  Transmission Date: 20050211
  Serious: Yes (Other)
  Sender: FDA-Public Use
  Company Number: A-US2003-02225

PATIENT
  Age: 46 Year
  Sex: Female

DRUGS (10)
  1. TRACLEER [Suspect]
     Indication: PULMONARY HYPERTENSION
     Dosage: SEE IMAGE
     Dates: start: 20020629, end: 20020729
  2. TRACLEER [Suspect]
     Indication: PULMONARY HYPERTENSION
     Dosage: SEE IMAGE
     Dates: start: 20020730, end: 20030304
  3. COUMADIN [Concomitant]
  4. ALDACTONE [Concomitant]
  5. SYNTHROID [Concomitant]
  6. IRON (IRON) [Concomitant]
  7. BACTRIM DS [Concomitant]
  8. DIGOXIN [Concomitant]
  9. LASIX [Concomitant]
  10. PROSTACYCLIN (EPOPROSTENOL) [Concomitant]

REACTIONS (5)
  - ALANINE AMINOTRANSFERASE INCREASED [None]
  - ASPARTATE AMINOTRANSFERASE INCREASED [None]
  - BLOOD ALKALINE PHOSPHATASE INCREASED [None]
  - BLOOD BILIRUBIN INCREASED [None]
  - LIVER FUNCTION TEST ABNORMAL [None]
